FAERS Safety Report 15606955 (Version 1)
Quarter: 2018Q4

REPORT INFORMATION
  Report Type: Spontaneous
  Country: US (occurrence: US)
  Receive Date: 20181107
  Receipt Date: 20181107
  Transmission Date: 20190205
  Serious: No
  Sender: FDA-Public Use
  Company Number: None

PATIENT
  Age: 85 Year
  Sex: Male

DRUGS (4)
  1. ELIQUIS [Suspect]
     Active Substance: APIXABAN
  2. ZYTIGA [Suspect]
     Active Substance: ABIRATERONE ACETATE
     Dates: start: 20180301
  3. ASPIRIN. [Suspect]
     Active Substance: ASPIRIN
  4. PREDNISONE 5MG TAB WATSON [Suspect]
     Active Substance: PREDNISONE
     Dates: start: 20180301

REACTIONS (2)
  - Diverticulitis [None]
  - Rectal haemorrhage [None]

NARRATIVE: CASE EVENT DATE: 20181105
